FAERS Safety Report 11231263 (Version 1)
Quarter: 2015Q3

REPORT INFORMATION
  Report Type: Spontaneous
  Country: CA (occurrence: CA)
  Receive Date: 20150701
  Receipt Date: 20150701
  Transmission Date: 20151125
  Serious: Yes (Other)
  Sender: FDA-Public Use
  Company Number: CA-SA-2015SA090301

PATIENT
  Age: 49 Year
  Sex: Female

DRUGS (3)
  1. RAMIPRIL. [Suspect]
     Active Substance: RAMIPRIL
     Route: 065
  2. LEVOTHYROXINE. [Suspect]
     Active Substance: LEVOTHYROXINE
     Route: 065
  3. LANTUS [Suspect]
     Active Substance: INSULIN GLARGINE
     Route: 065

REACTIONS (8)
  - Pain [Unknown]
  - Acromegaly [Unknown]
  - Diabetes mellitus [Unknown]
  - Renal failure [Unknown]
  - Peripheral swelling [Unknown]
  - Hypertension [Unknown]
  - Hyperhidrosis [Unknown]
  - Arthritis [Unknown]

NARRATIVE: CASE EVENT DATE: 2010
